FAERS Safety Report 14920876 (Version 1)
Quarter: 2018Q2

REPORT INFORMATION
  Report Type: Spontaneous
  Country: US (occurrence: US)
  Receive Date: 20180521
  Receipt Date: 20180521
  Transmission Date: 20180711
  Serious: Yes (Life-Threatening, Other)
  Sender: FDA-Public Use
  Company Number: None

PATIENT
  Age: 30 Year
  Sex: Male
  Weight: 86.18 kg

DRUGS (5)
  1. DEPAKOTE [Suspect]
     Active Substance: DIVALPROEX SODIUM
     Indication: BIPOLAR I DISORDER
     Route: 048
     Dates: start: 20160404
  2. ABILIFY [Concomitant]
     Active Substance: ARIPIPRAZOLE
  3. LITHIUM. [Concomitant]
     Active Substance: LITHIUM
  4. RISPERIDONE. [Concomitant]
     Active Substance: RISPERIDONE
  5. ZYPREXA [Suspect]
     Active Substance: OLANZAPINE
     Indication: BIPOLAR I DISORDER
     Route: 048
     Dates: start: 20180210

REACTIONS (3)
  - Tardive dyskinesia [None]
  - Abnormal weight gain [None]
  - Haematemesis [None]

NARRATIVE: CASE EVENT DATE: 20160915
